FAERS Safety Report 6415905 (Version 3)
Quarter: 2013Q4

REPORT INFORMATION
  Report Type: Spontaneous
  Country: US (occurrence: US)
  Receive Date: 20070917
  Receipt Date: 20131227
  Transmission Date: 20140711
  Serious: Yes (Other)
  Sender: FDA-Public Use
  Company Number: US-ASTRAZENECA-2006UW19429

PATIENT
  Age: 60 Year
  Sex: Female
  Weight: 57.6 kg

DRUGS (18)
  1. NEXIUM [Suspect]
     Route: 048
  2. TOPROL XL [Suspect]
     Route: 048
  3. SEROQUEL [Suspect]
     Indication: BIPOLAR DISORDER
     Dosage: 50 MG BID, 100 MG TABLET SPLIT IN HALF
     Route: 048
     Dates: start: 20060915, end: 20060930
  4. SEROQUEL [Suspect]
     Indication: ANXIETY
     Dosage: 50 MG BID, 100 MG TABLET SPLIT IN HALF
     Route: 048
     Dates: start: 20060915, end: 20060930
  5. SEROQUEL [Suspect]
     Indication: DEPRESSION
     Dosage: 50 MG BID, 100 MG TABLET SPLIT IN HALF
     Route: 048
     Dates: start: 20060915, end: 20060930
  6. SEROQUEL [Suspect]
     Indication: MOOD SWINGS
     Dosage: 50 MG BID, 100 MG TABLET SPLIT IN HALF
     Route: 048
     Dates: start: 20060915, end: 20060930
  7. CRESTOR [Suspect]
     Indication: BLOOD CHOLESTEROL INCREASED
     Route: 048
     Dates: start: 20130822
  8. LITHIUM [Concomitant]
     Indication: ANXIETY
     Route: 048
     Dates: start: 2002
  9. KLONOPIN [Concomitant]
     Indication: ANXIETY
     Route: 048
     Dates: start: 2002
  10. NORVASC [Concomitant]
  11. ZOLOFT [Concomitant]
     Indication: DEPRESSION
     Dosage: 100 MG DAILY
     Route: 048
     Dates: start: 2002
  12. SYNTHROID [Concomitant]
  13. ASPIRIN [Concomitant]
  14. CEFTAN [Concomitant]
  15. LYRICA [Concomitant]
  16. BENTYL [Concomitant]
  17. CLOZEPAM [Concomitant]
  18. LITHOBID [Concomitant]

REACTIONS (13)
  - Renal cancer [Unknown]
  - Malaise [Unknown]
  - Tension [Unknown]
  - Irritability [Unknown]
  - Anxiety [Recovered/Resolved]
  - Somnolence [Unknown]
  - Palpitations [Unknown]
  - Hypertension [Unknown]
  - Migraine [Unknown]
  - Nausea [Unknown]
  - Feeling jittery [Unknown]
  - Drug dose omission [Unknown]
  - Intentional drug misuse [Unknown]
